FAERS Safety Report 13608092 (Version 1)
Quarter: 2017Q2

REPORT INFORMATION
  Report Type: Spontaneous
  Country: BR (occurrence: BR)
  Receive Date: 20170602
  Receipt Date: 20170602
  Transmission Date: 20170830
  Serious: Yes (Other)
  Sender: FDA-Public Use
  Company Number: BR-FTV20160708-01

PATIENT
  Age: 53 Year
  Sex: Male
  Weight: 89 kg

DRUGS (1)
  1. FACTIVE [Suspect]
     Active Substance: GEMIFLOXACIN MESYLATE
     Indication: SINUSITIS
     Route: 048
     Dates: start: 20160626, end: 20160626

REACTIONS (6)
  - Burning sensation [None]
  - Skin disorder [None]
  - Hypersensitivity [Recovered/Resolved]
  - Lip swelling [None]
  - Ear swelling [None]
  - Erythema [None]

NARRATIVE: CASE EVENT DATE: 20160627
